FAERS Safety Report 4757101-8 (Version None)
Quarter: 2005Q3

REPORT INFORMATION
  Report Type: 
  Country: None (occurrence: None)
  Receive Date: 20050829
  Receipt Date: 20050815
  Transmission Date: 20060218
  Serious: Yes (Hospitalization, Other)
  Sender: FDA-Public Use
  Company Number: 2005049506

PATIENT
  Age: 72 Year
  Sex: Female
  Weight: 94.5 kg

DRUGS (11)
  1. DETROL LA [Suspect]
     Indication: HYPERTONIC BLADDER
     Dosage: 4 MG (4 MG, 1 IN 1 D), ORAL
     Route: 048
     Dates: start: 20040101, end: 20050301
  2. MONTELUKAST (MONTELUKAST) [Concomitant]
  3. SYNTHROID [Concomitant]
  4. LORAZEPAM [Concomitant]
  5. WELLBUTRIN XL (BLUPROPION HYDROCHLORIDE) [Concomitant]
  6. PROTONIX [Concomitant]
  7. ZELNORM [Concomitant]
  8. MIACALCIN [Concomitant]
  9. BENADRYL [Concomitant]
  10. TYLENOL [Concomitant]
  11. CITRUCEL (METHYLCELLULOSE) [Concomitant]

REACTIONS (4)
  - CONDITION AGGRAVATED [None]
  - DRUG INEFFECTIVE [None]
  - HYPERTONIC BLADDER [None]
  - IRRITABLE BOWEL SYNDROME [None]
